FAERS Safety Report 9995262 (Version 1)
Quarter: 2014Q1

REPORT INFORMATION
  Report Type: Spontaneous
  Country: US (occurrence: None)
  Receive Date: 20140307
  Receipt Date: 20140307
  Transmission Date: 20141002
  Serious: Yes (Disabling, Other)
  Sender: FDA-Public Use
  Company Number: None

PATIENT
  Age: 81 Year
  Sex: Female
  Weight: 61.24 kg

DRUGS (9)
  1. RECLAST [Suspect]
     Indication: OSTEOPOROSIS
     Dosage: ONCE YEARLY
     Route: 041
     Dates: start: 20111210, end: 20131210
  2. METFORMIN [Concomitant]
  3. BYSTOLIC [Concomitant]
  4. NIFEDIAC [Concomitant]
  5. FOLIC ACID [Concomitant]
  6. CYANOCOBALM [Concomitant]
  7. CHOLESTYRAMINE [Concomitant]
  8. PRESERVISION ARED [Concomitant]
  9. METAMUCIL [Concomitant]

REACTIONS (5)
  - Dyspnoea [None]
  - Fatigue [None]
  - Muscle spasms [None]
  - Musculoskeletal stiffness [None]
  - Memory impairment [None]
